FAERS Safety Report 24582102 (Version 4)
Quarter: 2025Q1

REPORT INFORMATION
  Report Type: Spontaneous
  Country: US (occurrence: US)
  Receive Date: 20241105
  Receipt Date: 20250131
  Transmission Date: 20250408
  Serious: No
  Sender: SANDOZ
  Company Number: US-SANDOZ-SDZ2024US092456

PATIENT
  Sex: Female

DRUGS (1)
  1. ALBUTEROL SULFATE [Suspect]
     Active Substance: ALBUTEROL SULFATE
     Indication: Dyspnoea
     Dosage: ONE INHALATION TWICE A DAY(BID), STRENGTH AS 90 MCG
     Route: 065

REACTIONS (3)
  - Product dose omission issue [Unknown]
  - Device use issue [Unknown]
  - Device issue [Unknown]
